FAERS Safety Report 8296752-3 (Version None)
Quarter: 2012Q2

REPORT INFORMATION
  Report Type: 
  Country: None (occurrence: None)
  Receive Date: 20120418
  Receipt Date: 20120410
  Transmission Date: 20120825
  Serious: Yes (Other)
  Sender: FDA-Public Use
  Company Number: US-AMGEN-USASP2012021475

PATIENT
  Age: 96 Year
  Sex: Female

DRUGS (24)
  1. ASPIRIN [Concomitant]
     Dosage: UNK
  2. ENTERIC COATED BABY ASPIRN [Concomitant]
  3. ZIAC [Concomitant]
     Dosage: UNK MG, UNK
  4. ATIVAN [Concomitant]
     Dosage: UNK MG, UNK
  5. EYE VITE [Concomitant]
  6. SYNTHROID [Concomitant]
     Dosage: 004 MUG, UNK
  7. FOBIC [Concomitant]
  8. PROLIA [Suspect]
     Indication: OSTEOPOROSIS POSTMENOPAUSAL
     Dosage: 60 MG, Q6MO
     Dates: start: 20100805
  9. ZIAC [Concomitant]
  10. LIPITOR [Concomitant]
     Dosage: UNK MG, UNK
  11. CARAFATE [Concomitant]
     Dosage: 012 ML, UNK
  12. TYLENOL (CAPLET) [Concomitant]
  13. MULTIVITAMIN                       /00097801/ [Concomitant]
  14. MULTI-VITAMIN [Concomitant]
  15. CARAFATE [Concomitant]
  16. LIPITOR [Concomitant]
  17. ATIVAN [Concomitant]
  18. SYNTHROID [Concomitant]
  19. CITRACAL                           /00751520/ [Concomitant]
     Dosage: UNK
  20. EYEVITE [Concomitant]
     Dosage: UNK
  21. CITRACAL [Concomitant]
  22. LASIX [Concomitant]
     Dosage: UNK MG, UNK
  23. FOLBIC [Concomitant]
     Dosage: UNK
  24. TYLENOL W/ CODEINE NO. 3 [Concomitant]

REACTIONS (1)
  - SPINAL COMPRESSION FRACTURE [None]
